FAERS Safety Report 25143240 (Version 1)
Quarter: 2025Q2

REPORT INFORMATION
  Report Type: Spontaneous
  Country: GB (occurrence: GB)
  Receive Date: 20250401
  Receipt Date: 20250401
  Transmission Date: 20250717
  Serious: Yes (Hospitalization)
  Sender: ACCORD
  Company Number: None

PATIENT
  Age: 76 Year
  Sex: Male
  Weight: 88 kg

DRUGS (3)
  1. ATORVASTATIN [Suspect]
     Active Substance: ATORVASTATIN
     Indication: Arterial graft
     Dates: start: 20231101
  2. RIVAROXABAN [Concomitant]
     Active Substance: RIVAROXABAN
     Dates: start: 20241201
  3. ASPIRIN [Concomitant]
     Active Substance: ASPIRIN
     Dates: start: 20241101

REACTIONS (1)
  - Anal incontinence [Not Recovered/Not Resolved]

NARRATIVE: CASE EVENT DATE: 20231101
